FAERS Safety Report 8606845 (Version 4)
Quarter: 2014Q1

REPORT INFORMATION
  Report Type: Spontaneous
  Country: US (occurrence: US)
  Receive Date: 20120611
  Receipt Date: 20140108
  Transmission Date: 20141002
  Serious: Yes (Hospitalization)
  Sender: FDA-Public Use
  Company Number: US-ASTRAZENECA-2012SE35283

PATIENT
  Sex: Male

DRUGS (23)
  1. NEXIUM [Suspect]
     Indication: GASTROOESOPHAGEAL REFLUX DISEASE
     Route: 048
     Dates: start: 20081203
  2. NEXIUM [Suspect]
     Indication: GASTRIC DISORDER
     Route: 048
     Dates: start: 20081203
  3. NEXIUM [Suspect]
     Indication: GASTROOESOPHAGEAL REFLUX DISEASE
     Dosage: ONCE DAILY
     Route: 048
     Dates: start: 20120829
  4. NEXIUM [Suspect]
     Indication: GASTRIC DISORDER
     Dosage: ONCE DAILY
     Route: 048
     Dates: start: 20120829
  5. ZANTAC [Concomitant]
     Dates: start: 20130310
  6. ASPIRIN [Concomitant]
  7. ATENOLOL [Concomitant]
     Route: 048
     Dates: start: 20081205
  8. TOPAMAX [Concomitant]
     Dates: start: 20081211
  9. PRESTIGE [Concomitant]
  10. HYDROCODONE [Concomitant]
  11. ADVODART [Concomitant]
  12. FLOMAX [Concomitant]
  13. MELOXICAM [Concomitant]
     Dates: start: 20120816
  14. METHCARBANOL [Concomitant]
  15. SEROQUEL [Concomitant]
     Dates: start: 20120824
  16. SEROQUEL [Concomitant]
     Route: 048
     Dates: start: 20081118
  17. SEROQUEL [Concomitant]
     Route: 048
     Dates: start: 20081125
  18. VENLAFAXINE [Concomitant]
     Dates: start: 20120829
  19. VENLAFAXINE [Concomitant]
     Dates: start: 20081209
  20. DICYCLOMINE [Concomitant]
     Dates: start: 20120816
  21. NAPROXEN [Concomitant]
     Dates: start: 20081124
  22. HYDROCO/APAP [Concomitant]
     Dosage: 7.5 MG/ 650 MG
     Dates: start: 20081124
  23. OXYBUTYNIN [Concomitant]
     Dates: start: 20081218

REACTIONS (5)
  - Depression [Unknown]
  - Osteoporosis [Unknown]
  - Arthritis [Unknown]
  - Arthropathy [Unknown]
  - Hand fracture [Unknown]
